FAERS Safety Report 17425936 (Version 2)
Quarter: 2023Q4

REPORT INFORMATION
  Report Type: Spontaneous
  Country: US (occurrence: US)
  Receive Date: 20200217
  Receipt Date: 20231202
  Transmission Date: 20240109
  Serious: No
  Sender: FDA-Public Use
  Company Number: US-BAYER-2020-027909

PATIENT
  Sex: Female

DRUGS (1)
  1. MIRENA [Suspect]
     Active Substance: LEVONORGESTREL
     Dosage: 20 ?G PER DAY CONTINUOUSLY
     Route: 015
     Dates: start: 201904

REACTIONS (2)
  - Pelvic discomfort [None]
  - Vaginal discharge [None]
